FAERS Safety Report 16019100 (Version 3)
Quarter: 2023Q4

REPORT INFORMATION
  Report Type: Report from Study
  Country: IT (occurrence: IT)
  Receive Date: 20190228
  Receipt Date: 20231215
  Transmission Date: 20240110
  Serious: Yes (Hospitalization)
  Sender: FDA-Public Use
  Company Number: None

PATIENT
  Age: 51 Year

DRUGS (1)
  1. COPAXONE [Suspect]
     Active Substance: GLATIRAMER ACETATE
     Indication: Multiple sclerosis
     Dosage: DOSAGE: 40 MG/ML
     Route: 058
     Dates: start: 20040308

REACTIONS (4)
  - Metastases to bone [Not Recovered/Not Resolved]
  - Invasive ductal breast carcinoma [Not Recovered/Not Resolved]
  - Metastases to lung [Not Recovered/Not Resolved]
  - Neoplasm recurrence [Not Recovered/Not Resolved]

NARRATIVE: CASE EVENT DATE: 20150323
